FAERS Safety Report 15720673 (Version 1)
Quarter: 2018Q4

REPORT INFORMATION
  Report Type: Report from Study
  Country: DE (occurrence: DE)
  Receive Date: 20181213
  Receipt Date: 20181213
  Transmission Date: 20190205
  Serious: Yes (Hospitalization, Other)
  Sender: FDA-Public Use
  Company Number: DE-GLAXOSMITHKLINE-DE2018224864

PATIENT
  Age: 76 Year
  Sex: Male

DRUGS (7)
  1. DICLOFENAC SODIUM. [Suspect]
     Active Substance: DICLOFENAC SODIUM
     Indication: PRODUCT USED FOR UNKNOWN INDICATION
     Dosage: UNK
     Route: 065
  2. ADENURIC [Concomitant]
     Active Substance: FEBUXOSTAT
     Indication: PAIN
     Dosage: 80 MG, QOD
     Route: 048
     Dates: start: 20180509
  3. DICLOFENAC SODIUM. [Suspect]
     Active Substance: DICLOFENAC SODIUM
     Indication: PRODUCT USED FOR UNKNOWN INDICATION
     Dosage: UNK
     Route: 065
  4. METOPROLOL 1A PHARMA [Suspect]
     Active Substance: METOPROLOL
     Indication: BLOOD PRESSURE ABNORMAL
     Dosage: 95 MG, QD
     Route: 048
     Dates: start: 201503
  5. VALSARTAN. [Concomitant]
     Active Substance: VALSARTAN
     Dosage: 80 MG, QD
     Route: 048
     Dates: start: 20171001, end: 20180509
  6. PREDNISOLON JENAPHARM [Concomitant]
     Indication: PRODUCT USED FOR UNKNOWN INDICATION
     Dosage: 1 DF, QD
     Route: 048
     Dates: start: 20180509
  7. VALSARTAN. [Concomitant]
     Active Substance: VALSARTAN
     Indication: BLOOD PRESSURE ABNORMAL
     Dosage: 160 MG, QD
     Route: 048
     Dates: start: 20171001, end: 20180509

REACTIONS (17)
  - Pyrexia [Unknown]
  - Cardiac failure chronic [Unknown]
  - Blood pressure increased [Unknown]
  - Pain in extremity [Unknown]
  - Drug ineffective [Unknown]
  - Nasopharyngitis [Unknown]
  - Peripheral swelling [Unknown]
  - Pain in extremity [Unknown]
  - Back pain [Unknown]
  - Abdominal pain lower [Unknown]
  - Pneumonia [Unknown]
  - Pulmonary oedema [Recovered/Resolved]
  - Peripheral coldness [Not Recovered/Not Resolved]
  - Nosocomial infection [Unknown]
  - Pain [Unknown]
  - Rhinorrhoea [Not Recovered/Not Resolved]
  - Appendicitis [Unknown]

NARRATIVE: CASE EVENT DATE: 201510
